FAERS Safety Report 20282597 (Version 1)
Quarter: 2022Q1

REPORT INFORMATION
  Report Type: Spontaneous
  Country: US (occurrence: None)
  Receive Date: 20220101
  Receipt Date: 20220101
  Transmission Date: 20220423
  Serious: Yes (Hospitalization)
  Sender: FDA-Public Use
  Company Number: None

PATIENT
  Age: 89 Year
  Sex: Male
  Weight: 69 kg

DRUGS (1)
  1. FUROSEMIDE [Suspect]
     Active Substance: FUROSEMIDE
     Dosage: FREQUENCY : TWICE A DAY;?
     Route: 048
     Dates: start: 20210216, end: 20210222

REACTIONS (5)
  - Orthostatic hypotension [None]
  - Acute kidney injury [None]
  - Nausea [None]
  - Lactic acidosis [None]
  - Polyuria [None]

NARRATIVE: CASE EVENT DATE: 20210222
